FAERS Safety Report 9256845 (Version 3)
Quarter: 2013Q2

REPORT INFORMATION
  Report Type: Spontaneous
  Country: US (occurrence: None)
  Receive Date: 20130423
  Receipt Date: 20130522
  Transmission Date: 20140414
  Serious: Yes (Hospitalization, Other)
  Sender: FDA-Public Use
  Company Number: 2013EXPUS00093

PATIENT
  Age: 30 Year
  Sex: Female
  Weight: 45 kg

DRUGS (4)
  1. EXPAREL (BUPIVACAINE) LIPOSOME INJECTABLE SUSPENSION, MG/ML [Suspect]
     Indication: POSTOPERATIVE ANALGESIA
     Dosage: 15 CC 1X INFILTRATION
     Dates: start: 20130415, end: 20130415
  2. MARCAINE [Suspect]
     Indication: PRODUCT USED FOR UNKNOWN INDICATION
     Dosage: 0.5
     Dates: start: 20130415, end: 20130415
  3. EFFEXOR (VENLAFAXINE HYDROCHLORIDE) UNKNOWN [Concomitant]
  4. CLONOPIN (CLONAZEPAM) [Concomitant]

REACTIONS (3)
  - Convulsion [None]
  - Toxicity to various agents [None]
  - Chills [None]
